FAERS Safety Report 25887763 (Version 2)
Quarter: 2025Q4

REPORT INFORMATION
  Report Type: Spontaneous
  Country: US (occurrence: US)
  Receive Date: 20251007
  Receipt Date: 20251028
  Transmission Date: 20260118
  Serious: Yes (Death, Life-Threatening, Hospitalization)
  Sender: TEVA
  Company Number: US-TEVA-VS-3379387

PATIENT
  Age: 66 Year
  Sex: Male

DRUGS (12)
  1. FENTANYL [Suspect]
     Active Substance: FENTANYL
     Indication: Sedative therapy
     Route: 065
  2. NOREPINEPHRINE [Concomitant]
     Active Substance: NOREPINEPHRINE
     Indication: Vasopressive therapy
     Route: 065
  3. PROPOFOL [Concomitant]
     Active Substance: PROPOFOL
     Indication: Sedative therapy
     Route: 065
  4. AZTREONAM [Suspect]
     Active Substance: AZTREONAM
     Indication: Pseudomonas infection
     Route: 065
  5. AVIBACTAM SODIUM\CEFTAZIDIME [Suspect]
     Active Substance: AVIBACTAM SODIUM\CEFTAZIDIME
     Indication: Pseudomonas infection
     Route: 065
  6. ANIDULAFUNGIN [Suspect]
     Active Substance: ANIDULAFUNGIN
     Indication: Candida infection
     Route: 065
  7. LINEZOLID [Interacting]
     Active Substance: LINEZOLID
     Indication: Enterococcal infection
     Route: 042
  8. LINEZOLID [Interacting]
     Active Substance: LINEZOLID
     Indication: Enterococcal infection
     Route: 042
  9. LINEZOLID [Interacting]
     Active Substance: LINEZOLID
     Indication: Enterococcal infection
     Dosage: ONE HOUR INFUSION
     Route: 042
  10. LINEZOLID [Interacting]
     Active Substance: LINEZOLID
     Indication: Enterococcal infection
     Route: 042
  11. KETAMINE [Interacting]
     Active Substance: KETAMINE
     Indication: Pain management
     Route: 065
  12. PIPERACILLIN AND TAZOBACTAM [Concomitant]
     Active Substance: PIPERACILLIN SODIUM\TAZOBACTAM SODIUM
     Indication: Antibiotic therapy

REACTIONS (4)
  - Drug ineffective [Fatal]
  - Adrenergic syndrome [Recovered/Resolved]
  - Drug interaction [Unknown]
  - Drug level decreased [Unknown]
